FAERS Safety Report 4314856-4 (Version None)
Quarter: 2004Q1

REPORT INFORMATION
  Report Type: 
  Country: None (occurrence: None)
  Receive Date: 20040308
  Receipt Date: 20040226
  Transmission Date: 20041129
  Serious: Yes (Hospitalization)
  Sender: FDA-Public Use
  Company Number: FRWYE604626FEB04

PATIENT
  Age: 74 Year
  Sex: Male

DRUGS (4)
  1. BISOPROLOL FUMARATE [Suspect]
     Dosage: 1 TABLET 1X PER 1 DAY ORAL
     Route: 048
     Dates: start: 20030308, end: 20030603
  2. PRAVASTATIN SODIUM [Suspect]
     Dosage: 1 TABLET 1X PER 1 DAY ORAL
     Route: 048
     Dates: start: 20030308, end: 20030422
  3. KARDEGIC (ACETYLSALICYLATE LYSINE) [Suspect]
     Dosage: 160 MG 1X PER 1 DAY ORAL
     Route: 048
     Dates: start: 20030308, end: 20031008
  4. PLAVIX [Suspect]
     Dosage: 1 TABLET 1X PER 1 DAY ORAL
     Route: 048
     Dates: start: 20030308, end: 20030422

REACTIONS (8)
  - ANTINUCLEAR ANTIBODY POSITIVE [None]
  - DERMATITIS EXFOLIATIVE [None]
  - EOSINOPHILIA [None]
  - HYPERNATRAEMIA [None]
  - LYMPHADENOPATHY [None]
  - LYMPHOPENIA [None]
  - PRURITUS [None]
  - RASH ERYTHEMATOUS [None]
